FAERS Safety Report 6975218-4 (Version None)
Quarter: 2010Q3

REPORT INFORMATION
  Report Type: 
  Country: None (occurrence: None)
  Receive Date: 20100910
  Receipt Date: 20090217
  Transmission Date: 20110219
  Serious: No
  Sender: FDA-Public Use
  Company Number: US-WYE-H08252009

PATIENT
  Sex: Male
  Weight: 90.8 kg

DRUGS (5)
  1. PRISTIQ [Suspect]
     Indication: DEPRESSION
     Route: 048
     Dates: start: 20090114, end: 20090215
  2. PRISTIQ [Suspect]
     Route: 048
     Dates: start: 20090216
  3. SEROQUEL [Suspect]
     Indication: DEPRESSION
     Route: 048
     Dates: start: 20090114, end: 20090101
  4. SEROQUEL [Suspect]
     Dosage: TITRATED DOWN TO 50 MG DAILY
     Route: 048
     Dates: start: 20090101
  5. SUBOXONE [Concomitant]

REACTIONS (5)
  - AKATHISIA [None]
  - DIZZINESS [None]
  - NAUSEA [None]
  - TREMOR [None]
  - VISION BLURRED [None]
